FAERS Safety Report 7416419-0 (Version None)
Quarter: 2011Q2

REPORT INFORMATION
  Report Type: 
  Country: None (occurrence: None)
  Receive Date: 20110414
  Receipt Date: 20110413
  Transmission Date: 20111010
  Serious: Yes (Hospitalization, Other)
  Sender: FDA-Public Use
  Company Number: BE-ABBOTT-11P-013-0715951-00

PATIENT
  Sex: Male

DRUGS (2)
  1. HUMIRA [Suspect]
     Indication: ANKYLOSING SPONDYLITIS
     Dates: start: 20071122
  2. CLEXANE [Concomitant]
     Indication: THROMBOSIS PROPHYLAXIS

REACTIONS (8)
  - DIARRHOEA [None]
  - ROTATOR CUFF SYNDROME [None]
  - PULMONARY EMBOLISM [None]
  - CONSTIPATION [None]
  - CROHN'S DISEASE [None]
  - DEEP VEIN THROMBOSIS [None]
  - ANAL FISSURE [None]
  - IRRITABLE BOWEL SYNDROME [None]
